FAERS Safety Report 5739690-X (Version None)
Quarter: 2008Q2

REPORT INFORMATION
  Report Type: 
  Country: None (occurrence: None)
  Receive Date: 20080513
  Receipt Date: 20080430
  Transmission Date: 20081010
  Serious: Yes (Hospitalization)
  Sender: FDA-Public Use
  Company Number: 2008-176624-NL

PATIENT
  Age: 26 Year
  Sex: Female

DRUGS (2)
  1. NUVARING [Suspect]
     Dosage: DF
     Dates: start: 20051101
  2. LEVOTHYROXINE SODIUM [Concomitant]

REACTIONS (4)
  - CYSTITIS [None]
  - KIDNEY INFECTION [None]
  - VAGINITIS BACTERIAL [None]
  - WEIGHT INCREASED [None]
